FAERS Safety Report 8521555-1 (Version None)
Quarter: 2012Q3

REPORT INFORMATION
  Report Type: 
  Country: None (occurrence: None)
  Receive Date: 20120719
  Receipt Date: 20120713
  Transmission Date: 20120928
  Serious: Yes (Life-Threatening, Other)
  Sender: FDA-Public Use
  Company Number: PHHY2012JP061468

PATIENT
  Age: 75 Year
  Sex: Female

DRUGS (16)
  1. METHOTREXATE [Suspect]
     Indication: RHEUMATOID ARTHRITIS
     Dosage: 10 MG, QW
     Dates: start: 20000401, end: 20110405
  2. ORENCIA [Suspect]
     Indication: RHEUMATOID ARTHRITIS
     Dosage: 500 MG, UNK
     Route: 041
     Dates: start: 20110107
  3. METHOTREXATE [Suspect]
     Dosage: 4 MG, QW
     Dates: start: 20110715, end: 20110808
  4. METHOTREXATE [Suspect]
     Dosage: 4 MG, QW
     Dates: start: 20111126, end: 20120208
  5. FOSAMAX [Concomitant]
  6. PREDNISOLONE [Concomitant]
  7. ORENCIA [Suspect]
     Dosage: 500 MG, UNK
     Route: 041
     Dates: start: 20110203
  8. WARFARIN POTASSIUM [Concomitant]
     Indication: DEEP VEIN THROMBOSIS
  9. MUCOSTA [Concomitant]
  10. BETAMETHASONE [Concomitant]
     Dates: start: 20111214
  11. VOLTAREN [Suspect]
     Indication: RHEUMATOID ARTHRITIS
  12. ORENCIA [Suspect]
     Dosage: 500 MG, UNK
     Route: 041
     Dates: start: 20110304
  13. ORENCIA [Suspect]
     Dosage: 500 MG, UNK
     Dates: start: 20110514
  14. METHOTREXATE [Suspect]
     Dosage: 6 MG/ WEEK
     Dates: start: 20120208, end: 20120509
  15. METHOTREXATE [Suspect]
     Dosage: 6 MG, QW
     Dates: start: 20110808, end: 20111126
  16. SULFAMETHOXAZOLE AND TRIMETHOPRIM [Concomitant]
     Indication: ANTIFUNGAL PROPHYLAXIS

REACTIONS (6)
  - POST PROCEDURAL INFECTION [None]
  - DUODENAL ULCER PERFORATION [None]
  - POST PROCEDURAL COMPLICATION [None]
  - RED BLOOD CELL COUNT DECREASED [None]
  - INTERSTITIAL LUNG DISEASE [None]
  - PERITONITIS [None]
